FAERS Safety Report 12769935 (Version 1)
Quarter: 2016Q3

REPORT INFORMATION
  Report Type: Spontaneous
  Country: US (occurrence: US)
  Receive Date: 20160922
  Receipt Date: 20160922
  Transmission Date: 20161109
  Serious: Yes (Other)
  Sender: FDA-Public Use
  Company Number: US-CONCORDIA PHARMACEUTICALS INC.-GSH201609-004715

PATIENT
  Age: 45 Year
  Sex: Female

DRUGS (29)
  1. HUMIRA [Suspect]
     Active Substance: ADALIMUMAB
  2. REMICADE [Suspect]
     Active Substance: INFLIXIMAB
  3. AUGMENTIN [Concomitant]
     Active Substance: AMOXICILLIN\CLAVULANATE POTASSIUM
  4. INTAL [Concomitant]
     Active Substance: CROMOLYN SODIUM
  5. BENADRYL [Concomitant]
     Active Substance: DIPHENHYDRAMINE HYDROCHLORIDE
  6. LYRICA [Concomitant]
     Active Substance: PREGABALIN
  7. MAGNESIUM OXIDE. [Concomitant]
     Active Substance: MAGNESIUM OXIDE
  8. MOBIC [Concomitant]
     Active Substance: MELOXICAM
  9. AVELOX [Suspect]
     Active Substance: MOXIFLOXACIN HYDROCHLORIDE
  10. FACTIVE [Suspect]
     Active Substance: GEMIFLOXACIN MESYLATE
  11. AMRIX [Concomitant]
     Active Substance: CYCLOBENZAPRINE HYDROCHLORIDE
  12. GAS X ORAL [Concomitant]
  13. ULTRAM [Concomitant]
     Active Substance: TRAMADOL HYDROCHLORIDE
  14. ENBREL [Suspect]
     Active Substance: ETANERCEPT
  15. ROBAXIN [Concomitant]
     Active Substance: METHOCARBAMOL
  16. PLAQUENIL [Suspect]
     Active Substance: HYDROXYCHLOROQUINE SULFATE
  17. HYDROCODONE [Suspect]
     Active Substance: HYDROCODONE
  18. ARTHROTEC 50 [Concomitant]
  19. ALBUTEROL. [Concomitant]
     Active Substance: ALBUTEROL
  20. CLARITIN D 24 HOUR [Concomitant]
  21. DESYREL [Concomitant]
     Active Substance: TRAZODONE HYDROCHLORIDE
  22. FLAGYL [Concomitant]
     Active Substance: METRONIDAZOLE\METRONIDAZOLE HYDROCHLORIDE
  23. LATEX NATURAL RUBBER [Suspect]
     Active Substance: NATURAL LATEX RUBBER
  24. FOLVITE [Concomitant]
     Active Substance: FOLIC ACID
  25. ULTRAM ER [Concomitant]
     Active Substance: TRAMADOL HYDROCHLORIDE
  26. CEFTIN [Suspect]
     Active Substance: CEFUROXIME AXETIL
  27. ALBUTEROL HFA INHALER [Concomitant]
     Dosage: 90 MCG/ACTUATION
  28. ANASPAZ LEVSIN [Concomitant]
  29. METHOTREXATE. [Concomitant]
     Active Substance: METHOTREXATE

REACTIONS (1)
  - Anaphylactic reaction [Unknown]

NARRATIVE: CASE EVENT DATE: 20130731
